FAERS Safety Report 6377191-9 (Version None)
Quarter: 2009Q3

REPORT INFORMATION
  Report Type: 
  Country: None (occurrence: None)
  Receive Date: 20090925
  Receipt Date: 20090918
  Transmission Date: 20100115
  Serious: Yes (Other)
  Sender: FDA-Public Use
  Company Number: A0786526A

PATIENT
  Age: 33 Year
  Sex: Male
  Weight: 107 kg

DRUGS (18)
  1. ACYCLOVIR [Suspect]
     Indication: MULTIPLE SCLEROSIS
     Dosage: 800MG TWICE PER DAY
     Route: 048
     Dates: start: 20080716, end: 20081006
  2. CIPROFLAXACIN [Suspect]
     Dosage: 500MG TWICE PER DAY
  3. REBIF [Suspect]
     Indication: MULTIPLE SCLEROSIS
     Dosage: 44MCG THREE TIMES PER WEEK
     Route: 058
     Dates: start: 20080509, end: 20080912
  4. FLAGYL [Suspect]
     Indication: PERIRECTAL ABSCESS
     Dosage: 500MG FOUR TIMES PER DAY
  5. UNKNOWN [Suspect]
     Indication: SOMNOLENCE
     Dosage: 10MG THREE TIMES PER DAY
  6. DILANTIN [Suspect]
     Dosage: 100MG THREE TIMES PER DAY
  7. ATENOLOL [Concomitant]
     Indication: HYPERTENSION
  8. SIMVASTATIN [Concomitant]
     Indication: BLOOD CHOLESTEROL INCREASED
     Dosage: 40MG PER DAY
  9. FOLIC ACID [Concomitant]
     Dosage: 1MG PER DAY
  10. FLUOXETINE [Concomitant]
     Indication: DEPRESSION
     Dosage: 20MG PER DAY
  11. FAMOTIDINE [Concomitant]
     Indication: MULTIPLE SCLEROSIS
  12. VITAMIN B-12 [Concomitant]
  13. VITAMIN D [Concomitant]
  14. ASCORBIC ACID [Concomitant]
  15. PROPOXYPHENE HCL CAP [Concomitant]
  16. PROMETHAZINE [Concomitant]
     Dosage: 25MG FOUR TIMES PER DAY
  17. VALIUM [Concomitant]
     Dosage: .5MG TWICE PER DAY
  18. PEPCID [Concomitant]
     Dosage: 20MG PER DAY

REACTIONS (8)
  - BALANCE DISORDER [None]
  - CONVULSION [None]
  - DIZZINESS [None]
  - FACE INJURY [None]
  - LOSS OF CONSCIOUSNESS [None]
  - NYSTAGMUS [None]
  - SYNCOPE [None]
  - THERAPEUTIC AGENT TOXICITY [None]
